FAERS Safety Report 11654291 (Version 7)
Quarter: 2017Q1

REPORT INFORMATION
  Report Type: Report from Study
  Country: CA (occurrence: CA)
  Receive Date: 20151023
  Receipt Date: 20170307
  Transmission Date: 20170428
  Serious: Yes (Hospitalization, Other)
  Sender: FDA-Public Use
  Company Number: CA-ROCHE-1597745

PATIENT
  Age: 74 Year
  Sex: Male

DRUGS (20)
  1. METHYLPREDNISOLONE. [Concomitant]
     Active Substance: METHYLPREDNISOLONE
     Indication: PREMEDICATION
     Route: 042
     Dates: start: 20150608
  2. RITUXAN [Suspect]
     Active Substance: RITUXIMAB
     Indication: RHEUMATOID ARTHRITIS
     Route: 042
     Dates: start: 20150608
  3. DIPHENHYDRAMINE HCL [Concomitant]
     Active Substance: DIPHENHYDRAMINE HYDROCHLORIDE
     Indication: PREMEDICATION
     Route: 048
     Dates: start: 20150608
  4. ACETAMINOPHEN. [Concomitant]
     Active Substance: ACETAMINOPHEN
     Indication: PREMEDICATION
     Route: 048
     Dates: start: 20150608
  5. RITUXAN [Suspect]
     Active Substance: RITUXIMAB
     Route: 042
     Dates: start: 20160916
  6. MIRTAZAPINE. [Concomitant]
     Active Substance: MIRTAZAPINE
  7. PANTOLOC [Concomitant]
     Active Substance: PANTOPRAZOLE SODIUM
  8. ONGLYZA [Concomitant]
     Active Substance: SAXAGLIPTIN HYDROCHLORIDE
  9. FENO-MICRO [Concomitant]
  10. RITUXAN [Suspect]
     Active Substance: RITUXIMAB
     Route: 042
     Dates: start: 20150629
  11. VITAMIN B12 [Concomitant]
     Active Substance: CYANOCOBALAMIN
  12. RITUXAN [Suspect]
     Active Substance: RITUXIMAB
     Route: 042
     Dates: start: 20151026
  13. VITAMIN B1 [Concomitant]
     Active Substance: THIAMINE HYDROCHLORIDE
  14. PREDNISONE. [Concomitant]
     Active Substance: PREDNISONE
  15. PREGABALINE [Concomitant]
     Active Substance: PREGABALIN
  16. FOLIC ACID. [Concomitant]
     Active Substance: FOLIC ACID
  17. QUETIAPINE. [Concomitant]
     Active Substance: QUETIAPINE
  18. FERROUS SULFATE. [Concomitant]
     Active Substance: FERROUS SULFATE
  19. ATORVASTATIN [Concomitant]
     Active Substance: ATORVASTATIN
  20. METFORMIN [Concomitant]
     Active Substance: METFORMIN HYDROCHLORIDE

REACTIONS (10)
  - Blood pressure fluctuation [Unknown]
  - Oxygen saturation decreased [Unknown]
  - Body temperature decreased [Unknown]
  - Haemorrhoids [Unknown]
  - Lung infection [Recovered/Resolved]
  - Blood magnesium decreased [Recovered/Resolved]
  - Peripheral swelling [Recovered/Resolved]
  - Skin mass [Not Recovered/Not Resolved]
  - Weight decreased [Unknown]
  - Face oedema [Recovered/Resolved]

NARRATIVE: CASE EVENT DATE: 201510
